FAERS Safety Report 8769645 (Version 2)
Quarter: 2012Q4

REPORT INFORMATION
  Report Type: 
  Country: IN (occurrence: IN)
  Receive Date: 20120905
  Receipt Date: 20120913
  Transmission Date: 20130627
  Serious: Yes (Disabling)
  Sender: FDA-Public Use
  Company Number: IN-ACCORD-014601

PATIENT
  Age: 35 Year
  Sex: Female

DRUGS (1)
  1. TACROLIMUS [Suspect]
     Indication: NEPHROTIC SYNDROME
     Route: 048

REACTIONS (2)
  - unilateral anterior ischaemic optic neuropathy [Recovered/Resolved]
  - Off label use (Nephrotic syndrome) [Unknown]
